FAERS Safety Report 14683211 (Version 1)
Quarter: 2018Q1

REPORT INFORMATION
  Report Type: Report from Study
  Country: JP (occurrence: JP)
  Receive Date: 20180327
  Receipt Date: 20180327
  Transmission Date: 20180509
  Serious: Yes (Death, Other)
  Sender: FDA-Public Use
  Company Number: JP-ROCHE-2092185

PATIENT

DRUGS (1)
  1. OMALIZUMAB. [Suspect]
     Active Substance: OMALIZUMAB
     Indication: ASTHMA
     Dosage: 75 MG TO 600 MG SUBCUTANEOUSLY EVERY 2 OR 4 WEEKS
     Route: 058

REACTIONS (17)
  - Myocardial infarction [Fatal]
  - Menstruation irregular [Unknown]
  - Uterine cancer [Fatal]
  - Neoplasm malignant [Unknown]
  - Hypereosinophilic syndrome [Unknown]
  - Malaise [Unknown]
  - Urticaria [Unknown]
  - Vomiting [Unknown]
  - Myalgia [Unknown]
  - Autoimmune disorder [Unknown]
  - Dizziness [Unknown]
  - Wheezing [Unknown]
  - Headache [Unknown]
  - Rash [Unknown]
  - Anaphylactic reaction [Unknown]
  - Injection site reaction [Unknown]
  - Pyrexia [Unknown]
